FAERS Safety Report 17714667 (Version 1)
Quarter: 2020Q2

REPORT INFORMATION
  Report Type: Spontaneous
  Country: US (occurrence: US)
  Receive Date: 20200427
  Receipt Date: 20200427
  Transmission Date: 20200714
  Serious: Yes (Other)
  Sender: FDA-Public Use
  Company Number: US-NAPPMUNDI-USA-2020-0152040

PATIENT
  Sex: Female

DRUGS (1)
  1. OXYCODONE HYDROCHLORIDE (SIMILAR TO NDA 22-272) [Suspect]
     Active Substance: OXYCODONE HYDROCHLORIDE
     Indication: PAIN
     Dosage: 1 TABLET, QID
     Route: 048
     Dates: start: 2006, end: 2019

REACTIONS (7)
  - Generalised tonic-clonic seizure [Unknown]
  - Drug dependence [Unknown]
  - Mania [Unknown]
  - Drug withdrawal syndrome [Unknown]
  - Psychomotor hyperactivity [Unknown]
  - Bipolar disorder [Unknown]
  - Attention deficit hyperactivity disorder [Unknown]
